FAERS Safety Report 23887195 (Version 2)
Quarter: 2024Q2

REPORT INFORMATION
  Report Type: Spontaneous
  Country: PT (occurrence: PT)
  Receive Date: 20240523
  Receipt Date: 20240607
  Transmission Date: 20240716
  Serious: Yes (Other)
  Sender: FDA-Public Use
  Company Number: PT-TEVA-VS-3200829

PATIENT
  Age: 62 Year
  Sex: Female

DRUGS (5)
  1. DULOXETINE [Interacting]
     Active Substance: DULOXETINE
     Indication: Fibromyalgia
     Route: 065
  2. DULOXETINE [Interacting]
     Active Substance: DULOXETINE
     Indication: Fibromyalgia
     Route: 065
  3. AMITRIPTYLINE [Suspect]
     Active Substance: AMITRIPTYLINE
     Indication: Fibromyalgia
     Dosage: LOW DOSE
     Route: 065
  4. SIMVASTATIN [Interacting]
     Active Substance: SIMVASTATIN
     Indication: Dyslipidaemia
     Route: 065
  5. CARVEDILOL [Interacting]
     Active Substance: CARVEDILOL
     Indication: Hypertension
     Route: 065

REACTIONS (3)
  - Drug ineffective [Unknown]
  - Hallucination, visual [Recovered/Resolved]
  - Drug interaction [Recovered/Resolved]
